FAERS Safety Report 17751439 (Version 2)
Quarter: 2020Q2

REPORT INFORMATION
  Report Type: Spontaneous
  Country: US (occurrence: US)
  Receive Date: 20200506
  Receipt Date: 20200508
  Transmission Date: 20200714
  Serious: No
  Sender: FDA-Public Use
  Company Number: US-SA-2020SA113746

PATIENT
  Age: 64 Year
  Sex: Female

DRUGS (13)
  1. LIALDA [Concomitant]
     Active Substance: MESALAMINE
  2. CANDESARTAN. [Concomitant]
     Active Substance: CANDESARTAN
  3. CRESTOR [Concomitant]
     Active Substance: ROSUVASTATIN CALCIUM
  4. AMITRIPTYLINE [Concomitant]
     Active Substance: AMITRIPTYLINE
  5. COMBIVIR [Concomitant]
     Active Substance: LAMIVUDINE\ZIDOVUDINE
     Dosage: UNK
  6. ROSUVASTATIN. [Concomitant]
     Active Substance: ROSUVASTATIN
  7. MEDROL [Concomitant]
     Active Substance: METHYLPREDNISOLONE
  8. METFORMIN [Concomitant]
     Active Substance: METFORMIN HYDROCHLORIDE
  9. XOLAIR [Concomitant]
     Active Substance: OMALIZUMAB
  10. DUPIXENT [Suspect]
     Active Substance: DUPILUMAB
     Indication: NASAL POLYPS
     Dosage: 300 MG, QOW
     Route: 058
     Dates: start: 20200124
  11. PREMARIN [Concomitant]
     Active Substance: ESTROGENS, CONJUGATED
  12. SINGULAIR [Concomitant]
     Active Substance: MONTELUKAST SODIUM
  13. ADVAIR HFA [Concomitant]
     Active Substance: FLUTICASONE PROPIONATE\SALMETEROL XINAFOATE

REACTIONS (3)
  - Condition aggravated [Unknown]
  - Rash [Unknown]
  - Skin mass [Unknown]

NARRATIVE: CASE EVENT DATE: 2020
